FAERS Safety Report 5085192-6 (Version None)
Quarter: 2006Q3

REPORT INFORMATION
  Report Type: 
  Country: None (occurrence: None)
  Receive Date: 20060822
  Receipt Date: 20060817
  Transmission Date: 20061208
  Serious: Yes (Death, Hospitalization)
  Sender: FDA-Public Use
  Company Number: JP-JNJFOC-20060205355

PATIENT
  Sex: Female
  Weight: 40 kg

DRUGS (13)
  1. REMICADE [Suspect]
  2. REMICADE [Suspect]
  3. REMICADE [Suspect]
  4. REMICADE [Suspect]
  5. REMICADE [Suspect]
     Indication: CROHN'S DISEASE
  6. PREDONINE [Concomitant]
     Route: 048
  7. PREDONINE [Concomitant]
     Indication: CROHN'S DISEASE
     Route: 048
  8. FLAGYL I.V. [Concomitant]
     Route: 048
  9. FLAGYL I.V. [Concomitant]
     Indication: CROHN'S DISEASE
     Route: 048
  10. AZANIN [Concomitant]
     Route: 048
  11. AZANIN [Concomitant]
     Indication: CROHN'S DISEASE
     Route: 048
  12. PHENOBARBITAL TAB [Concomitant]
     Indication: CONVULSION
     Route: 048
  13. LANDSEN [Concomitant]
     Indication: CONVULSION
     Route: 048

REACTIONS (14)
  - CALCULUS URETERIC [None]
  - CHOLANGITIS [None]
  - DRUG INEFFECTIVE [None]
  - ERYTHEMA [None]
  - HAEMORRHAGIC DIATHESIS [None]
  - HEPATOSPLENOMEGALY [None]
  - INFUSION RELATED REACTION [None]
  - PRURITUS [None]
  - PYREXIA [None]
  - RASH [None]
  - SEPSIS [None]
  - SHOCK [None]
  - STOMATITIS [None]
  - VASODILATATION [None]
